FAERS Safety Report 7466394-8 (Version None)
Quarter: 2011Q2

REPORT INFORMATION
  Report Type: 
  Country: None (occurrence: None)
  Receive Date: 20110509
  Receipt Date: 20110428
  Transmission Date: 20111010
  Serious: Yes (Other)
  Sender: FDA-Public Use
  Company Number: CH-ASTRAZENECA-2011SE24787

PATIENT
  Age: 75 Year
  Sex: Female
  Weight: 50 kg

DRUGS (2)
  1. CITALOPRAM HYDROBROMIDE [Concomitant]
  2. ARIMIDEX [Suspect]
     Indication: BREAST CANCER
     Route: 048
     Dates: start: 20110301, end: 20110311

REACTIONS (3)
  - BONE PAIN [None]
  - PYREXIA [None]
  - CHONDROCALCINOSIS PYROPHOSPHATE [None]
